FAERS Safety Report 21362935 (Version 2)
Quarter: 2022Q4

REPORT INFORMATION
  Report Type: Report from Study
  Country: AU (occurrence: None)
  Receive Date: 20220922
  Receipt Date: 20221007
  Transmission Date: 20230112
  Serious: Yes (Hospitalization)
  Sender: FDA-Public Use
  Company Number: AU-ROCHE-2313545

PATIENT
  Age: 55 Year
  Sex: Male
  Weight: 87.2 kg

DRUGS (23)
  1. ATEZOLIZUMAB [Suspect]
     Active Substance: ATEZOLIZUMAB
     Indication: Non-small cell lung cancer
     Dosage: ON 07/FEB/2019, HE RECEIVED MOST RECENT DOSE OF THE BLINDED STUDY MEDICATION.
     Route: 041
     Dates: start: 20181206
  2. PACLITAXEL [Suspect]
     Active Substance: PACLITAXEL
     Indication: Non-small cell lung cancer
     Dosage: ON 21/FEB/2019, HE RECEIVED MOST RECENT DOSE NAB-PACLITAXEL AT 217.5 MG.
     Route: 042
     Dates: start: 20181206
  3. CARBOPLATIN [Suspect]
     Active Substance: CARBOPLATIN
     Indication: Non-small cell lung cancer
     Dosage: ON 07/FEB/2019, HE RECEIVED MOST RECENT DOSE OF CARBOPLATIN AT THE DOSE OF 900 MG.
     Route: 042
     Dates: start: 20181206
  4. CANNABIS SATIVA SUBSP. INDICA TOP [Concomitant]
     Active Substance: CANNABIS SATIVA SUBSP. INDICA TOP
     Dates: start: 20181112
  5. ACETAMINOPHEN [Concomitant]
     Active Substance: ACETAMINOPHEN
     Indication: Back pain
     Dates: start: 20181113
  6. MAGNESIUM ASPARTATE [Concomitant]
     Active Substance: MAGNESIUM ASPARTATE
     Indication: Prophylaxis
     Dates: start: 20190123
  7. MOVICOL [Concomitant]
     Active Substance: POLYETHYLENE GLYCOL 3350\POTASSIUM CHLORIDE\SODIUM BICARBONATE\SODIUM CHLORIDE
     Indication: Constipation
     Dates: start: 20190131
  8. PANTOPRAZOLE [Concomitant]
     Active Substance: PANTOPRAZOLE
     Indication: Gastrooesophageal reflux disease
     Dates: start: 20190210
  9. BACTRIM [Concomitant]
     Active Substance: SULFAMETHOXAZOLE\TRIMETHOPRIM
     Indication: Prophylaxis
     Dates: start: 20190313
  10. PREDNISOLONE [Concomitant]
     Active Substance: PREDNISOLONE
     Indication: Hepatitis
     Route: 048
     Dates: start: 20190329, end: 20190330
  11. PREDNISOLONE [Concomitant]
     Active Substance: PREDNISOLONE
     Route: 048
     Dates: start: 20190331, end: 20190401
  12. PREDNISOLONE [Concomitant]
     Active Substance: PREDNISOLONE
     Route: 048
     Dates: start: 20190402, end: 20190403
  13. PREDNISOLONE [Concomitant]
     Active Substance: PREDNISOLONE
     Route: 048
     Dates: start: 20190404, end: 20190404
  14. PREDNISOLONE [Concomitant]
     Active Substance: PREDNISOLONE
     Route: 048
     Dates: start: 20190405, end: 20190407
  15. OXYCODONE [Concomitant]
     Active Substance: OXYCODONE
     Indication: Pain
     Dates: start: 20190320
  16. IBUPROFEN [Concomitant]
     Active Substance: IBUPROFEN
     Indication: Arthralgia
     Dates: start: 20190406
  17. FERROUS BISGLYCINATE [Concomitant]
     Active Substance: FERROUS BISGLYCINATE
     Indication: Prophylaxis
     Dates: start: 20190320
  18. SLOW K [Concomitant]
     Active Substance: POTASSIUM CHLORIDE
     Indication: Prophylaxis
     Dates: start: 20190320
  19. AMOXICILLIN [Concomitant]
     Active Substance: AMOXICILLIN
     Indication: Upper respiratory tract infection
     Dosage: 1 TABLET
     Route: 048
     Dates: start: 20190502, end: 20190507
  20. MAGNESIUM ASPARTATE [Concomitant]
     Active Substance: MAGNESIUM ASPARTATE
     Indication: Atrial fibrillation
     Dates: start: 20190323
  21. GABAPENTIN [Concomitant]
     Active Substance: GABAPENTIN
     Indication: Procedural pain
     Dates: start: 20190320
  22. MELOXICAM [Concomitant]
     Active Substance: MELOXICAM
     Indication: Procedural pain
     Dates: start: 20190320
  23. METOPROLOL [Concomitant]
     Active Substance: METOPROLOL
     Indication: Atrial fibrillation
     Dates: start: 20190320

REACTIONS (1)
  - Oesophageal spasm [Recovered/Resolved]

NARRATIVE: CASE EVENT DATE: 20190429
